FAERS Safety Report 6453885-1 (Version None)
Quarter: 2009Q4

REPORT INFORMATION
  Report Type: 
  Country: None (occurrence: None)
  Receive Date: 20091124
  Receipt Date: 20091118
  Transmission Date: 20100525
  Serious: Yes (Death, Hospitalization)
  Sender: FDA-Public Use
  Company Number: FI-PFIZER INC-2009299134

PATIENT
  Age: 53 Year
  Sex: Female

DRUGS (1)
  1. SALAZOPYRIN [Suspect]
     Indication: ANKYLOSING SPONDYLITIS
     Dosage: 1000MG + 500MG DAILY
     Route: 048
     Dates: start: 20090801, end: 20091026

REACTIONS (4)
  - MULTI-ORGAN FAILURE [None]
  - NECROTISING FASCIITIS [None]
  - PANCYTOPENIA [None]
  - SEPTIC SHOCK [None]
